FAERS Safety Report 4646538-3 (Version None)
Quarter: 2005Q2

REPORT INFORMATION
  Report Type: 
  Country: None (occurrence: None)
  Receive Date: 20050427
  Receipt Date: 20040928
  Transmission Date: 20051028
  Serious: No
  Sender: FDA-Public Use
  Company Number: US-GLAXOSMITHKLINE-A0527609A

PATIENT
  Age: 60 Year
  Sex: Female

DRUGS (2)
  1. FLONASE [Suspect]
     Indication: ILL-DEFINED DISORDER
     Route: 045
     Dates: start: 20040901
  2. NO CONCURRENT MEDICATION [Concomitant]

REACTIONS (2)
  - PAIN [None]
  - POOR QUALITY DRUG ADMINISTERED [None]
